FAERS Safety Report 17027428 (Version 1)
Quarter: 2019Q4

REPORT INFORMATION
  Report Type: Spontaneous
  Country: US (occurrence: US)
  Receive Date: 20191010
  Receipt Date: 20191010
  Transmission Date: 20200122
  Serious: No
  Sender: FDA-Public Use
  Company Number: None

PATIENT
  Age: 26 Year
  Sex: Female

DRUGS (1)
  1. HYDROXYPROG 250MG/ML (5ML) MDV [Suspect]
     Active Substance: HYDROXYPROGESTERONE
     Indication: NEOPLASM MALIGNANT
     Route: 058
     Dates: start: 201909

REACTIONS (2)
  - Injection site infection [None]
  - Product dosage form issue [None]

NARRATIVE: CASE EVENT DATE: 20191010
